FAERS Safety Report 9693016 (Version 3)
Quarter: 2014Q1

REPORT INFORMATION
  Report Type: Report from Study
  Country: US (occurrence: US)
  Receive Date: 20131118
  Receipt Date: 20140131
  Transmission Date: 20141002
  Serious: Yes (Other)
  Sender: FDA-Public Use
  Company Number: US-SANOFI-AVENTIS-2013SA083959

PATIENT
  Age: 43 Year
  Sex: Female

DRUGS (7)
  1. AUBAGIO [Suspect]
     Indication: MULTIPLE SCLEROSIS
     Route: 048
     Dates: start: 20130809
  2. AUBAGIO [Suspect]
     Indication: MULTIPLE SCLEROSIS
     Route: 048
     Dates: start: 20130809
  3. AUBAGIO [Suspect]
     Indication: MULTIPLE SCLEROSIS
     Route: 048
     Dates: start: 20130809
  4. AMPYRA [Suspect]
     Route: 065
  5. THYROID THERAPY [Concomitant]
  6. DIOVANE [Concomitant]
  7. DIURETICS [Concomitant]

REACTIONS (8)
  - Loss of consciousness [Unknown]
  - Hypertension [Not Recovered/Not Resolved]
  - Sinusitis [Recovering/Resolving]
  - Nausea [Unknown]
  - Pain in extremity [Not Recovered/Not Resolved]
  - Musculoskeletal stiffness [Recovering/Resolving]
  - Rash pruritic [Not Recovered/Not Resolved]
  - Alopecia [Not Recovered/Not Resolved]
